FAERS Safety Report 10296049 (Version 1)
Quarter: 2014Q3

REPORT INFORMATION
  Report Type: Spontaneous
  Country: US (occurrence: US)
  Receive Date: 20140710
  Receipt Date: 20140710
  Transmission Date: 20150326
  Serious: Yes (Other)
  Sender: FDA-Public Use
  Company Number: US-MUNDIPHARMA DS AND PHARMACOVIGILANCE-USA-2014-0114262

PATIENT
  Sex: Female

DRUGS (2)
  1. BUTRANS [Suspect]
     Active Substance: BUPRENORPHINE
     Indication: BACK PAIN
     Dosage: 10 MCG/HR, WEEKLY
     Route: 062
     Dates: start: 20140519
  2. BUTRANS [Suspect]
     Active Substance: BUPRENORPHINE
     Indication: FIBROMYALGIA

REACTIONS (3)
  - Wrong technique in drug usage process [Unknown]
  - Oropharyngeal pain [Unknown]
  - Chest pain [Unknown]

NARRATIVE: CASE EVENT DATE: 20140521
